FAERS Safety Report 5663234-4 (Version None)
Quarter: 2008Q1

REPORT INFORMATION
  Report Type: 
  Country: None (occurrence: None)
  Receive Date: 20080311
  Receipt Date: 20080311
  Transmission Date: 20080703
  Serious: Yes (Hospitalization)
  Sender: FDA-Public Use
  Company Number: None

PATIENT
  Age: 64 Year
  Sex: Female

DRUGS (1)
  1. TIGECYCLINE 50/5ML WYETH [Suspect]
     Indication: DEVICE RELATED INFECTION
     Dosage: 50 MG Q12H IV
     Route: 042
     Dates: start: 20071007, end: 20071021

REACTIONS (10)
  - ABDOMINAL PAIN UPPER [None]
  - ASPARTATE AMINOTRANSFERASE INCREASED [None]
  - BLOOD AMYLASE INCREASED [None]
  - BLOOD CALCIUM DECREASED [None]
  - GASTROINTESTINAL INFLAMMATION [None]
  - HAEMOGLOBIN DECREASED [None]
  - LIPASE INCREASED [None]
  - NAUSEA [None]
  - RETROPERITONEAL EFFUSION [None]
  - VOMITING [None]
